FAERS Safety Report 4959490-8 (Version None)
Quarter: 2006Q1

REPORT INFORMATION
  Report Type: 
  Country: None (occurrence: None)
  Receive Date: 20060331
  Receipt Date: 20060323
  Transmission Date: 20060701
  Serious: Yes (Other)
  Sender: FDA-Public Use
  Company Number: ES-MERCK-0603ESP00042

PATIENT

DRUGS (2)
  1. ALDOMET [Suspect]
  2. ESCITALOPRAM [Suspect]

REACTIONS (3)
  - DRUG EXPOSURE DURING PREGNANCY [None]
  - HYPOCALCAEMIA [None]
  - NEONATAL TETANY [None]
